FAERS Safety Report 8315692 (Version 3)
Quarter: 2017Q2

REPORT INFORMATION
  Report Type: Report from Study
  Country: DE (occurrence: DE)
  Receive Date: 20111229
  Receipt Date: 20170515
  Transmission Date: 20170830
  Serious: Yes (Hospitalization)
  Sender: FDA-Public Use
  Company Number: DE-ROCHE-1025717

PATIENT
  Age: 76 Year
  Sex: Female

DRUGS (5)
  1. CANDESARTAN. [Concomitant]
     Active Substance: CANDESARTAN
  2. ATACAND [Concomitant]
     Active Substance: CANDESARTAN CILEXETIL
  3. METFORMIN [Concomitant]
     Active Substance: METFORMIN HYDROCHLORIDE
  4. RANIBIZUMAB [Suspect]
     Active Substance: RANIBIZUMAB
     Indication: NEOVASCULAR AGE-RELATED MACULAR DEGENERATION
     Dosage: INJECTED INTO THE RIGHT EYE. LAST DOSE PRIOR TO SAE: 13/MAR/2011
     Route: 050
     Dates: start: 20110304, end: 20110304
  5. RANIBIZUMAB [Suspect]
     Active Substance: RANIBIZUMAB
     Dosage: INJECTED INTO THE RIGHT EYE. LAST DOSE PRIOR TO SAE: 13/MAR/2011
     Route: 050
     Dates: start: 20110313, end: 20110818

REACTIONS (2)
  - Inappropriate schedule of drug administration [Unknown]
  - Transient ischaemic attack [Recovered/Resolved]

NARRATIVE: CASE EVENT DATE: 20110720
